FAERS Safety Report 5108053-2 (Version None)
Quarter: 2006Q3

REPORT INFORMATION
  Report Type: 
  Country: None (occurrence: None)
  Receive Date: 20060915
  Receipt Date: 20060905
  Transmission Date: 20061208
  Serious: Yes (Hospitalization)
  Sender: FDA-Public Use
  Company Number: FABR-11622

PATIENT
  Age: 64 Year
  Sex: Male
  Weight: 96.6162 kg

DRUGS (11)
  1. FABRAZYME [Suspect]
     Indication: FABRY'S DISEASE
     Dosage: 85 MG Q2WKS IV
     Route: 042
     Dates: start: 20040122
  2. ATENOLOL [Concomitant]
  3. ALLOPURINOL [Concomitant]
  4. LASIX [Concomitant]
  5. CALCITONIN-SALMON [Concomitant]
  6. GLIPIZIDE [Concomitant]
  7. LOPID [Concomitant]
  8. IMDUR [Concomitant]
  9. NEURONTIN [Concomitant]
  10. NORVASC [Concomitant]
  11. TOPROL-XL [Concomitant]

REACTIONS (2)
  - MYOCARDIAL INFARCTION [None]
  - PULMONARY EMBOLISM [None]
